FAERS Safety Report 17763255 (Version 4)
Quarter: 2020Q2

REPORT INFORMATION
  Report Type: Report from Study
  Country: None (occurrence: BE)
  Receive Date: 20200508
  Receipt Date: 20200521
  Transmission Date: 20200714
  Serious: Yes (Hospitalization, Other)
  Sender: FDA-Public Use
  Company Number: BE-ABBVIE-20K-013-3394776-00

PATIENT
  Sex: Male

DRUGS (4)
  1. DUODOPA [Suspect]
     Active Substance: CARBIDOPA\LEVODOPA
     Indication: PARKINSON^S DISEASE
     Dosage: MD= 6ML, CD= 3.6ML/HR DURING 16HRS, ED= 1.5ML
     Route: 050
     Dates: start: 20200429, end: 20200505
  2. DUODOPA [Suspect]
     Active Substance: CARBIDOPA\LEVODOPA
     Dosage: MD= 6.5ML, CD= 4.4ML/HR DURING 16HRS, ED= 2ML?DOSE INCREASED
     Route: 050
     Dates: start: 20200505, end: 20200515
  3. DUODOPA [Suspect]
     Active Substance: CARBIDOPA\LEVODOPA
     Dosage: MD= 7ML, CD= 4.4ML/HR DURING 16HRS, ED= 2ML
     Route: 050
     Dates: start: 20200515
  4. SINEMET [Concomitant]
     Active Substance: CARBIDOPA\LEVODOPA
     Indication: PRODUCT USED FOR UNKNOWN INDICATION
     Route: 048

REACTIONS (12)
  - C-reactive protein increased [Unknown]
  - Staphylococcal infection [Unknown]
  - Fall [Recovered/Resolved]
  - Apathy [Unknown]
  - Sepsis [Unknown]
  - Balance disorder [Unknown]
  - Wound infection staphylococcal [Unknown]
  - Stoma site erythema [Not Recovered/Not Resolved]
  - Stoma site odour [Unknown]
  - Stoma site discharge [Not Recovered/Not Resolved]
  - Stoma site infection [Unknown]
  - Mobility decreased [Unknown]

NARRATIVE: CASE EVENT DATE: 2020
